FAERS Safety Report 9221949 (Version 1)
Quarter: 2013Q1

REPORT INFORMATION
  Report Type: Spontaneous
  Country: US (occurrence: None)
  Receive Date: 20120907
  Receipt Date: 20120907
  Transmission Date: 20140127
  Serious: No
  Sender: FDA-Public Use
  Company Number: TH-2012-00330

PATIENT
  Sex: Male

DRUGS (1)
  1. EGRIFTA [Suspect]
     Indication: LIPODYSTROPHY ACQUIRED
     Route: 058

REACTIONS (1)
  - Amylase increased [None]
